FAERS Safety Report 6555293-1 (Version None)
Quarter: 2010Q1

REPORT INFORMATION
  Report Type: 
  Country: None (occurrence: None)
  Receive Date: 20100128
  Receipt Date: 20090331
  Transmission Date: 20100710
  Serious: No
  Sender: FDA-Public Use
  Company Number: A0776399A

PATIENT
  Sex: Female

DRUGS (2)
  1. BUPROPION HYDROCHLORIDE [Suspect]
     Route: 048
     Dates: start: 20070101
  2. SINUS MEDICATION [Concomitant]

REACTIONS (2)
  - DRUG INEFFECTIVE [None]
  - RESTLESSNESS [None]
